FAERS Safety Report 9618702 (Version 4)
Quarter: 2013Q4

REPORT INFORMATION
  Report Type: Spontaneous
  Country: IT (occurrence: IT)
  Receive Date: 20131014
  Receipt Date: 20131129
  Transmission Date: 20140711
  Serious: Yes (Life-Threatening)
  Sender: FDA-Public Use
  Company Number: IT-RANBAXY-2013RR-73980

PATIENT
  Age: 69 Year
  Sex: Male

DRUGS (4)
  1. PANTOPRAZOLE [Suspect]
     Indication: DUODENAL ULCER
     Dosage: 80 MG DAILY
     Route: 048
  2. AMOXICILLIN [Concomitant]
     Indication: HELICOBACTER INFECTION
     Dosage: 1 G, BID
     Route: 065
  3. CLARITHROMYCIN [Concomitant]
     Indication: HELICOBACTER INFECTION
     Dosage: 500 MG, BID
     Route: 065
  4. ENOXAPARIN [Concomitant]
     Indication: PRODUCT USED FOR UNKNOWN INDICATION
     Dosage: UNK
     Route: 065

REACTIONS (1)
  - Renal failure acute [Recovering/Resolving]
